FAERS Safety Report 6563649-6 (Version None)
Quarter: 2010Q1

REPORT INFORMATION
  Report Type: 
  Country: None (occurrence: None)
  Receive Date: 20100130
  Receipt Date: 20091222
  Transmission Date: 20100710
  Serious: Yes (Hospitalization)
  Sender: FDA-Public Use
  Company Number: US-ABBOTT-09P-163-0616161-00

PATIENT
  Sex: Female
  Weight: 82.174 kg

DRUGS (1)
  1. HUMIRA [Suspect]
     Indication: RHEUMATOID ARTHRITIS
     Dates: start: 20091207, end: 20091207

REACTIONS (4)
  - ESCHERICHIA SEPSIS [None]
  - FATIGUE [None]
  - PYREXIA [None]
  - URINARY TRACT INFECTION [None]
